FAERS Safety Report 17740421 (Version 1)
Quarter: 2020Q2

REPORT INFORMATION
  Report Type: Spontaneous
  Country: US (occurrence: US)
  Receive Date: 20200504
  Receipt Date: 20200504
  Transmission Date: 20200714
  Serious: Yes (Hospitalization)
  Sender: FDA-Public Use
  Company Number: None

PATIENT
  Age: 63 Year
  Sex: Female

DRUGS (1)
  1. STELARA [Suspect]
     Active Substance: USTEKINUMAB
     Indication: GASTROINTESTINAL DISORDER
     Dosage: ?          OTHER FREQUENCY:EVERY 8 WEEKS;?
     Route: 058
     Dates: start: 20200205

REACTIONS (5)
  - Chronic obstructive pulmonary disease [None]
  - Migraine [None]
  - Crohn^s disease [None]
  - Asthma [None]
  - SARS-CoV-2 test [None]

NARRATIVE: CASE EVENT DATE: 20200308
